FAERS Safety Report 18220809 (Version 3)
Quarter: 2022Q4

REPORT INFORMATION
  Report Type: Spontaneous
  Country: IT (occurrence: IT)
  Receive Date: 20200902
  Receipt Date: 20221228
  Transmission Date: 20230113
  Serious: Yes (Hospitalization, Other)
  Sender: FDA-Public Use
  Company Number: IT-MINISAL02-631886

PATIENT
  Age: 18 Year
  Sex: Female

DRUGS (6)
  1. ALPRAZOLAM [Suspect]
     Active Substance: ALPRAZOLAM
     Indication: Borderline personality disorder
     Dosage: 10 DOSAGE FORM, TOTAL
     Route: 048
     Dates: start: 20180206
  2. ABILIFY [Suspect]
     Active Substance: ARIPIPRAZOLE
     Indication: Borderline personality disorder
     Dosage: 10 DOSAGE FORM, TOTAL
     Route: 048
     Dates: start: 20180206
  3. ZOLPIDEM TARTRATE [Suspect]
     Active Substance: ZOLPIDEM TARTRATE
     Indication: Borderline personality disorder
     Dosage: 10 DOSAGE FORM, TOTAL
     Route: 048
     Dates: start: 20180206
  4. AKINETON [Concomitant]
     Active Substance: BIPERIDEN HYDROCHLORIDE
     Indication: Extrapyramidal disorder
     Dosage: 4 MILLIGRAM, ONCE A DAY
     Route: 048
  5. LITHIUM CARBONATE [Concomitant]
     Active Substance: LITHIUM CARBONATE
     Indication: Borderline personality disorder
     Dosage: 900 MILLIGRAM, ONCE A DAY
     Route: 048
  6. TALOFEN [Concomitant]
     Active Substance: PROMAZINE HYDROCHLORIDE
     Indication: Borderline personality disorder
     Dosage: 15 GTT DROPS, AS NECESSARY
     Route: 048

REACTIONS (3)
  - Drug abuse [Recovering/Resolving]
  - Sopor [Recovering/Resolving]
  - Sedation [Recovering/Resolving]

NARRATIVE: CASE EVENT DATE: 20180206
